FAERS Safety Report 12151822 (Version 1)
Quarter: 2016Q1

REPORT INFORMATION
  Report Type: Spontaneous
  Country: FR (occurrence: FR)
  Receive Date: 20160304
  Receipt Date: 20160304
  Transmission Date: 20160526
  Serious: Yes (Congenital Anomaly)
  Sender: FDA-Public Use
  Company Number: FR-ABBVIE-16P-056-1573403-00

PATIENT

DRUGS (1)
  1. DEPAKINE [Suspect]
     Active Substance: VALPROATE SODIUM
     Indication: MATERNAL EXPOSURE TIMING UNSPECIFIED
     Route: 064

REACTIONS (10)
  - Heart disease congenital [Unknown]
  - Kidney malformation [Unknown]
  - Congenital musculoskeletal anomaly [Unknown]
  - Dysmorphism [Unknown]
  - Intellectual disability [Unknown]
  - Autism [Unknown]
  - Spine malformation [Unknown]
  - Congenital anomaly [Unknown]
  - Foetal exposure during pregnancy [Unknown]
  - Learning disorder [Unknown]
